FAERS Safety Report 14351057 (Version 4)
Quarter: 2018Q2

REPORT INFORMATION
  Report Type: Report from Study
  Country: US (occurrence: US)
  Receive Date: 20180104
  Receipt Date: 20180409
  Transmission Date: 20180711
  Serious: Yes (Other)
  Sender: FDA-Public Use
  Company Number: US-GILEAD-2017-0303204

PATIENT
  Age: 72 Year
  Sex: Female
  Weight: 77 kg

DRUGS (5)
  1. ADEMPAS [Concomitant]
     Active Substance: RIOCIGUAT
  2. TYVASO [Suspect]
     Active Substance: TREPROSTINIL
     Dosage: 12 UG
     Route: 055
     Dates: start: 2017
  3. TYVASO [Suspect]
     Active Substance: TREPROSTINIL
     Dosage: 18 UG
     Route: 055
     Dates: start: 20171102
  4. AMBRISENTAN [Suspect]
     Active Substance: AMBRISENTAN
     Indication: PULMONARY ARTERIAL HYPERTENSION
     Dosage: 5 MG, QD
     Route: 065
     Dates: start: 20171009
  5. TYVASO [Suspect]
     Active Substance: TREPROSTINIL
     Indication: PULMONARY ARTERIAL HYPERTENSION
     Dosage: 18 - 54 UG, QID
     Route: 055
     Dates: start: 20171017

REACTIONS (25)
  - Fall [Recovered/Resolved]
  - Dysphagia [Unknown]
  - Headache [Recovered/Resolved]
  - Vomiting [Not Recovered/Not Resolved]
  - Loss of consciousness [Unknown]
  - Weight decreased [Unknown]
  - Musculoskeletal pain [Recovered/Resolved]
  - Constipation [Unknown]
  - Flushing [Unknown]
  - Fatigue [Unknown]
  - Decreased appetite [Not Recovered/Not Resolved]
  - Diarrhoea [Unknown]
  - Lung disorder [Unknown]
  - Abdominal pain upper [Recovered/Resolved]
  - Dizziness [Unknown]
  - Asthenia [Unknown]
  - Nausea [Not Recovered/Not Resolved]
  - Abdominal discomfort [Unknown]
  - Cough [Not Recovered/Not Resolved]
  - Pain in jaw [Not Recovered/Not Resolved]
  - Weight decreased [Not Recovered/Not Resolved]
  - Hypoacusis [Unknown]
  - Oesophageal stenosis [Unknown]
  - Headache [Unknown]
  - Dyspnoea exertional [Unknown]

NARRATIVE: CASE EVENT DATE: 201710
